FAERS Safety Report 11844546 (Version 1)
Quarter: 2015Q4

REPORT INFORMATION
  Report Type: Spontaneous
  Country: US (occurrence: US)
  Receive Date: 20151217
  Receipt Date: 20151217
  Transmission Date: 20160305
  Serious: Yes (Other)
  Sender: FDA-Public Use
  Company Number: US-AMGEN-USASP2015133204

PATIENT
  Age: 62 Year
  Sex: Female

DRUGS (1)
  1. ENBREL [Suspect]
     Active Substance: ETANERCEPT
     Indication: RHEUMATOID ARTHRITIS
     Dosage: 50 MG EVERY 18 DAYS
     Route: 065
     Dates: start: 2007

REACTIONS (5)
  - Pyrexia [Unknown]
  - Rheumatoid arthritis [Unknown]
  - Nasal congestion [Unknown]
  - Nasopharyngitis [Unknown]
  - Oropharyngeal pain [Unknown]
